FAERS Safety Report 11522857 (Version 3)
Quarter: 2015Q4

REPORT INFORMATION
  Report Type: Spontaneous
  Country: JP (occurrence: JP)
  Receive Date: 20150918
  Receipt Date: 20151211
  Transmission Date: 20160304
  Serious: Yes (Death, Hospitalization, Other)
  Sender: FDA-Public Use
  Company Number: JP-GLAXOSMITHKLINE-JP2015JPN128300

PATIENT
  Age: 66 Year
  Sex: Male
  Weight: 34 kg

DRUGS (23)
  1. FERROUS SULFATE [Concomitant]
     Active Substance: FERROUS SULFATE\FERROUS SULFATE, DRIED
     Dosage: UNK
  2. SODIUM BICARBONATE. [Concomitant]
     Active Substance: SODIUM BICARBONATE
     Dosage: UNK
  3. ZOPICLONE [Concomitant]
     Active Substance: ZOPICLONE
     Dosage: UNK
  4. VEGETAMIN-A [Concomitant]
     Active Substance: CHLORPROMAZINE\PROMETHAZINE
     Dosage: UNK
  5. IRRIBOW [Concomitant]
     Active Substance: RAMOSETRON HYDROCHLORIDE
     Dosage: UNK
  6. ATORVASTATIN [Concomitant]
     Active Substance: ATORVASTATIN
     Dosage: UNK
  7. SENNOSIDE [Concomitant]
     Active Substance: SENNOSIDES
     Dosage: UNK
  8. FEBURIC [Concomitant]
     Active Substance: FEBUXOSTAT
     Dosage: UNK
     Dates: start: 20150703, end: 20150710
  9. CHLORPROMAZINE PHENOLPHTHALINATE [Concomitant]
     Dosage: UNK, PRN
     Dates: start: 20150722
  10. CONIEL [Concomitant]
     Active Substance: BENIDIPINE HYDROCHLORIDE
     Dosage: UNK
  11. CALTAN [Concomitant]
     Active Substance: CALCIUM CARBONATE
     Dosage: UNK
     Dates: start: 20150703, end: 20150710
  12. LAMICTAL [Suspect]
     Active Substance: LAMOTRIGINE
     Dosage: 50 MG, QD
     Route: 048
     Dates: start: 20150512, end: 20150601
  13. PREDONINE [Concomitant]
     Active Substance: PREDNISOLONE\PREDNISOLONE ACETATE\PREDNISOLONE SODIUM SUCCINATE
     Dosage: UNK
  14. ALFACALCIDOL [Concomitant]
     Active Substance: ALFACALCIDOL
     Dosage: UNK
  15. LAMICTAL [Suspect]
     Active Substance: LAMOTRIGINE
     Dosage: 25 MG, QD
     Route: 048
     Dates: start: 20150414, end: 20150511
  16. LAMICTAL [Suspect]
     Active Substance: LAMOTRIGINE
     Dosage: 100 MG, QD
     Route: 048
     Dates: start: 20150602, end: 20150608
  17. ABILIFY [Concomitant]
     Active Substance: ARIPIPRAZOLE
     Dosage: UNK
  18. LANSOPRAZOLE-OD [Concomitant]
     Active Substance: LANSOPRAZOLE
     Dosage: UNK
  19. LAMICTAL [Suspect]
     Active Substance: LAMOTRIGINE
     Indication: BIPOLAR DISORDER
     Dosage: 25 MG, QOD
     Route: 048
     Dates: start: 20150330, end: 20150413
  20. LAMICTAL [Suspect]
     Active Substance: LAMOTRIGINE
     Dosage: 300 MG, QD
     Route: 048
     Dates: start: 20150609, end: 20150713
  21. ESTAZOLAM. [Concomitant]
     Active Substance: ESTAZOLAM
     Dosage: UNK
  22. TENELIA [Concomitant]
     Active Substance: CITALOPRAM HYDROBROMIDE
     Dosage: UNK
  23. SANCOBA [Concomitant]
     Active Substance: CYANOCOBALAMIN
     Dosage: UNK

REACTIONS (33)
  - Asphyxia [Unknown]
  - Neutrophil count decreased [Unknown]
  - Pruritus generalised [Unknown]
  - Perivascular dermatitis [Unknown]
  - Eczema [Unknown]
  - Necrosis [Unknown]
  - Chloasma [Unknown]
  - Pyrexia [Unknown]
  - Respiratory arrest [Unknown]
  - White blood cell count increased [Unknown]
  - Papuloerythroderma of Ofuji [Unknown]
  - Hypereosinophilic syndrome [Unknown]
  - Drug reaction with eosinophilia and systemic symptoms [Unknown]
  - Prurigo [Unknown]
  - Hyperkeratosis [Unknown]
  - Sputum increased [Unknown]
  - Drug prescribing error [Unknown]
  - Chronic kidney disease [Fatal]
  - Eosinophil count increased [Unknown]
  - Scar [Unknown]
  - Eyelid oedema [Unknown]
  - Skin erosion [Unknown]
  - Dermatitis exfoliative [Recovering/Resolving]
  - Disseminated intravascular coagulation [Unknown]
  - Hypoxic-ischaemic encephalopathy [Unknown]
  - Rash pruritic [Recovered/Resolved]
  - Salivary hypersecretion [Unknown]
  - Skin exfoliation [Unknown]
  - Cardio-respiratory arrest [Unknown]
  - Hypoxia [Unknown]
  - Drug eruption [Unknown]
  - Skin oedema [Unknown]
  - Infection [Unknown]

NARRATIVE: CASE EVENT DATE: 20150511
